FAERS Safety Report 16568436 (Version 1)
Quarter: 2019Q3

REPORT INFORMATION
  Report Type: Spontaneous
  Country: US (occurrence: US)
  Receive Date: 20190712
  Receipt Date: 20190712
  Transmission Date: 20191004
  Serious: No
  Sender: FDA-Public Use
  Company Number: US-TEVA-2019-US-1066396

PATIENT
  Sex: Female

DRUGS (1)
  1. METOPROLOL TARTRATE WATSON BRAND [Suspect]
     Active Substance: METOPROLOL TARTRATE
     Route: 065

REACTIONS (2)
  - Abdominal pain upper [Unknown]
  - Product substitution issue [Unknown]
